FAERS Safety Report 11863671 (Version 1)
Quarter: 2015Q4

REPORT INFORMATION
  Report Type: Spontaneous
  Country: IT (occurrence: IT)
  Receive Date: 20151223
  Receipt Date: 20151223
  Transmission Date: 20160305
  Serious: Yes (Hospitalization, Other)
  Sender: FDA-Public Use
  Company Number: IT-ELI_LILLY_AND_COMPANY-IT201511002960

PATIENT
  Age: 66 Year
  Sex: Male
  Weight: 92 kg

DRUGS (6)
  1. CLEXANE T [Suspect]
     Active Substance: ENOXAPARIN SODIUM
     Indication: PROPHYLAXIS
     Dosage: 8000 IU, QD
     Route: 058
     Dates: start: 20150901, end: 20151016
  2. GEMZAR [Suspect]
     Active Substance: GEMCITABINE HYDROCHLORIDE
     Indication: LUNG ADENOCARCINOMA
     Dosage: 2000 MG, CYCLICAL
     Route: 042
     Dates: start: 20150805, end: 20151002
  3. DIAMOX                             /00016901/ [Concomitant]
     Active Substance: ACETAZOLAMIDE
     Indication: OEDEMA
     Dosage: 250 MG, UNK
     Route: 048
  4. IPERTEN [Concomitant]
     Active Substance: MANIDIPINE
     Dosage: 20 MG, UNKNOWN
     Route: 048
  5. CISPLATIN TEVA [Suspect]
     Active Substance: CISPLATIN
     Indication: LUNG ADENOCARCINOMA
     Dosage: 150 MG, CYCLICAL
     Route: 042
     Dates: start: 20150805, end: 20151002
  6. COAPROVEL [Concomitant]
     Active Substance: HYDROCHLOROTHIAZIDE\IRBESARTAN
     Indication: HYPERTENSION
     Dosage: 1 DF, UNK
     Route: 048

REACTIONS (7)
  - Thrombocytopenia [Not Recovered/Not Resolved]
  - Epistaxis [Recovering/Resolving]
  - Asthenia [Recovering/Resolving]
  - Amnesia [Unknown]
  - Confusional state [Recovering/Resolving]
  - Peripheral sensory neuropathy [Recovering/Resolving]
  - Headache [Recovering/Resolving]

NARRATIVE: CASE EVENT DATE: 20151009
